FAERS Safety Report 9447820 (Version 2)
Quarter: 2013Q3

REPORT INFORMATION
  Report Type: Spontaneous
  Country: AR (occurrence: AR)
  Receive Date: 20130808
  Receipt Date: 20130925
  Transmission Date: 20140515
  Serious: Yes (Other)
  Sender: FDA-Public Use
  Company Number: AR-AMGEN-ARGSP2013055429

PATIENT
  Age: 54 Year
  Sex: Female

DRUGS (11)
  1. ENBREL [Suspect]
     Indication: RHEUMATOID ARTHRITIS
     Dosage: 50 MG, WEEKLY
     Route: 058
     Dates: start: 20100301
  2. LEVOTHYROXINE [Concomitant]
     Indication: HYPOTHYROIDISM
     Dosage: UNK
  3. OMEPRAZOL                          /00661201/ [Concomitant]
     Dosage: UNK
  4. ARCOXIA [Concomitant]
     Dosage: UNK
  5. DIUREX                             /00022001/ [Concomitant]
     Indication: HYPERTENSION
     Dosage: UNK
  6. LOTRIAL                            /00574902/ [Concomitant]
     Indication: HYPERTENSION
     Dosage: UNK
  7. TERLOC [Concomitant]
     Indication: HYPERTENSION
     Dosage: UNK
  8. CALCIUM [Concomitant]
     Indication: OSTEOPOROSIS
     Dosage: UNK
  9. CALCIUM [Concomitant]
     Indication: OSTEOPENIA
  10. CALCIUM CYCLAMATE [Concomitant]
     Indication: OSTEOPOROSIS
     Dosage: UNK
  11. CALCIUM CYCLAMATE [Concomitant]
     Indication: OSTEOPENIA

REACTIONS (3)
  - Foot deformity [Recovered/Resolved]
  - Finger deformity [Recovering/Resolving]
  - Arthralgia [Recovering/Resolving]
